FAERS Safety Report 24884406 (Version 1)
Quarter: 2025Q1

REPORT INFORMATION
  Report Type: Spontaneous
  Country: US (occurrence: None)
  Receive Date: 20250124
  Receipt Date: 20250124
  Transmission Date: 20250409
  Serious: Yes (Life-Threatening)
  Sender: FDA-CTU
  Company Number: None

PATIENT
  Age: 64 Year
  Sex: Female
  Weight: 63 kg

DRUGS (1)
  1. ROCEPHIN [Suspect]
     Active Substance: CEFTRIAXONE SODIUM
     Indication: Pneumonia
     Route: 040
     Dates: start: 20250122, end: 20250122

REACTIONS (18)
  - Acute respiratory failure [None]
  - Chronic obstructive pulmonary disease [None]
  - Leukocytosis [None]
  - Electrocardiogram QRS complex abnormal [None]
  - Electrocardiogram T wave abnormal [None]
  - Dizziness [None]
  - Headache [None]
  - Cardio-respiratory arrest [None]
  - Unresponsive to stimuli [None]
  - Pharyngeal oedema [None]
  - Lip oedema [None]
  - Heart rate irregular [None]
  - Ventricular tachycardia [None]
  - Hypertension [None]
  - Hypotension [None]
  - Ventricular fibrillation [None]
  - Pulse absent [None]
  - Shock [None]

NARRATIVE: CASE EVENT DATE: 20250122
